FAERS Safety Report 15789107 (Version 3)
Quarter: 2019Q2

REPORT INFORMATION
  Report Type: Spontaneous
  Country: US (occurrence: US)
  Receive Date: 20190104
  Receipt Date: 20190528
  Transmission Date: 20190711
  Serious: No
  Sender: FDA-Public Use
  Company Number: US-PFIZER INC-2019004215

PATIENT
  Age: 82 Year
  Sex: Male

DRUGS (2)
  1. EUCRISA [Suspect]
     Active Substance: CRISABOROLE
     Indication: PERIPHERAL VENOUS DISEASE
     Dosage: 60 GM 2% PAP, APPLY BY TOPICAL ROUTE, TWICE A DAY TO AFFECTED AREA
     Route: 061
     Dates: start: 20180930
  2. SILVER SULFADIAZINE. [Concomitant]
     Active Substance: SILVER SULFADIAZINE
     Dosage: UNK
     Dates: start: 20190102

REACTIONS (6)
  - Skin atrophy [Recovered/Resolved]
  - Application site erythema [Recovered/Resolved]
  - Application site pain [Recovered/Resolved]
  - Skin exfoliation [Unknown]
  - Application site rash [Unknown]
  - Product use in unapproved indication [Unknown]

NARRATIVE: CASE EVENT DATE: 20180930
